FAERS Safety Report 6859240-4 (Version None)
Quarter: 2010Q3

REPORT INFORMATION
  Report Type: 
  Country: None (occurrence: None)
  Receive Date: 20100719
  Receipt Date: 20080225
  Transmission Date: 20110219
  Serious: No
  Sender: FDA-Public Use
  Company Number: US-PFIZER INC-2008018558

PATIENT
  Sex: Female
  Weight: 127 kg

DRUGS (10)
  1. CHANTIX [Suspect]
     Indication: SMOKING CESSATION THERAPY
     Route: 048
     Dates: start: 20080214
  2. COREG [Concomitant]
  3. ALTACE [Concomitant]
  4. LASIX [Concomitant]
  5. SPIRONOLACTONE [Concomitant]
  6. ABILIFY [Concomitant]
  7. CYMBALTA [Concomitant]
  8. DEPAKOTE [Concomitant]
  9. PROVIGIL [Concomitant]
  10. RESTORIL [Concomitant]
     Dates: end: 20080201

REACTIONS (4)
  - ABNORMAL DREAMS [None]
  - FEAR [None]
  - NIGHTMARE [None]
  - PALPITATIONS [None]
